FAERS Safety Report 7249712-5 (Version None)
Quarter: 2011Q1

REPORT INFORMATION
  Report Type: 
  Country: None (occurrence: None)
  Receive Date: 20110128
  Receipt Date: 20110117
  Transmission Date: 20110831
  Serious: Yes (Other)
  Sender: FDA-Public Use
  Company Number: US-SANOFI-AVENTIS-2011SA003258

PATIENT
  Age: 55 Year
  Sex: Male

DRUGS (4)
  1. ISONIAZID [Suspect]
     Indication: LUNG INFECTION
     Route: 065
  2. ETHAMBUTOL HYDROCHLORIDE [Suspect]
     Indication: LUNG INFECTION
     Dosage: 26 MG/KG
     Route: 065
     Dates: start: 20050101
  3. RIFAMPIN [Suspect]
     Indication: LUNG INFECTION
     Route: 065
  4. ETHAMBUTOL HYDROCHLORIDE [Suspect]
     Route: 065
     Dates: start: 20060601

REACTIONS (2)
  - OPTIC ATROPHY [None]
  - OPTIC NEUROPATHY [None]
